FAERS Safety Report 23010754 (Version 2)
Quarter: 2023Q4

REPORT INFORMATION
  Report Type: Spontaneous
  Country: US (occurrence: US)
  Receive Date: 20230929
  Receipt Date: 20231214
  Transmission Date: 20240109
  Serious: Yes (Disabling, Other)
  Sender: FDA-Public Use
  Company Number: US-REGENERON PHARMACEUTICALS, INC.-2023-107338

PATIENT
  Sex: Female

DRUGS (1)
  1. EYLEA [Suspect]
     Active Substance: AFLIBERCEPT
     Indication: Neovascular age-related macular degeneration
     Dosage: 2 MG, EVERY 7 WEEKS INTO LEFT EYE (STRENGTH: 2MG/0.05ML, FORMULATION: GERRESHEIMER PFS)
     Dates: start: 20201105

REACTIONS (2)
  - Blindness unilateral [Unknown]
  - Mycotic endophthalmitis [Recovered/Resolved]

NARRATIVE: CASE EVENT DATE: 20230606
